FAERS Safety Report 8865997 (Version 1)
Quarter: 2012Q4

REPORT INFORMATION
  Report Type: 
  Country: US (occurrence: US)
  Receive Date: 20121025
  Receipt Date: 20121025
  Transmission Date: 20130627
  Serious: No
  Sender: FDA-Public Use
  Company Number: US-ABBOTT-12P-163-0971726-00

PATIENT
  Age: 23 Year
  Sex: Female
  Weight: 70.37 kg

DRUGS (2)
  1. LUPRON DEPOT 3.75 MG [Suspect]
     Indication: ENDOMETRIOSIS
     Dosage: On 03 Aug 2012, the patient rec^d her fourth injection.
     Route: 030
     Dates: start: 201204
  2. NORETHINDRONE ACETATE [Concomitant]
     Indication: PRODUCT USED FOR UNKNOWN INDICATION
     Route: 048

REACTIONS (2)
  - Pelvic pain [Recovering/Resolving]
  - Headache [Not Recovered/Not Resolved]
